FAERS Safety Report 16374802 (Version 1)
Quarter: 2019Q2

REPORT INFORMATION
  Report Type: Report from Study
  Country: US (occurrence: US)
  Receive Date: 20190530
  Receipt Date: 20190530
  Transmission Date: 20190711
  Serious: Yes (Hospitalization)
  Sender: FDA-Public Use
  Company Number: US-ASTRAZENECA-2019SE77877

PATIENT
  Sex: Male
  Weight: 83.9 kg

DRUGS (20)
  1. TAGRISSO [Suspect]
     Active Substance: OSIMERTINIB
     Indication: NON-SMALL CELL LUNG CANCER
     Route: 048
  2. FISH OIL [Concomitant]
     Active Substance: FISH OIL
  3. METHOTREXATE. [Concomitant]
     Active Substance: METHOTREXATE
  4. FUROSEMIDE. [Concomitant]
     Active Substance: FUROSEMIDE
  5. ATORVASTATIN [Concomitant]
     Active Substance: ATORVASTATIN
  6. VITAMIN C [Concomitant]
     Active Substance: ASCORBIC ACID
  7. ACIDOPHILUS [Concomitant]
     Active Substance: LACTOBACILLUS ACIDOPHILUS
  8. VITAMIN D3 [Concomitant]
     Active Substance: CHOLECALCIFEROL
  9. PANTOPRAZOLE [Concomitant]
     Active Substance: PANTOPRAZOLE
  10. LISINOPRIL. [Suspect]
     Active Substance: LISINOPRIL
     Route: 048
  11. ALEVE [Concomitant]
     Active Substance: NAPROXEN SODIUM
  12. ELIQUIS [Concomitant]
     Active Substance: APIXABAN
  13. MULTIVITAMINS [Concomitant]
     Active Substance: VITAMINS
  14. VITAMIN B12 [Concomitant]
     Active Substance: CYANOCOBALAMIN
  15. DIGOXIN. [Concomitant]
     Active Substance: DIGOXIN
  16. METOPROLOL SUCCINATE. [Suspect]
     Active Substance: METOPROLOL SUCCINATE
     Route: 048
  17. CALCIUM [Concomitant]
     Active Substance: CALCIUM
  18. FERROUS SULFATE. [Concomitant]
     Active Substance: FERROUS SULFATE
  19. FOLIC ACID. [Concomitant]
     Active Substance: FOLIC ACID
  20. ASPIRIN EC [Concomitant]
     Active Substance: ASPIRIN

REACTIONS (1)
  - Cardiac disorder [Unknown]
